FAERS Safety Report 4734981-3 (Version None)
Quarter: 2005Q3

REPORT INFORMATION
  Report Type: 
  Country: None (occurrence: None)
  Receive Date: 20050721
  Receipt Date: 20050427
  Transmission Date: 20060218
  Serious: No
  Sender: FDA-Public Use
  Company Number: 2005SP000405

PATIENT
  Age: 46 Year
  Sex: Male
  Weight: 88.4514 kg

DRUGS (8)
  1. LUNESTA [Suspect]
     Indication: INSOMNIA
     Dosage: 2; 3 MG; HS; ORAL
     Route: 048
     Dates: start: 20050425, end: 20050501
  2. LUNESTA [Suspect]
     Indication: INSOMNIA
     Dosage: 2; 3 MG; HS; ORAL
     Route: 048
     Dates: start: 20050502
  3. ALEVE [Concomitant]
  4. EXTRA STRENGTH TYLENOL [Concomitant]
  5. NAPROXEN [Concomitant]
  6. SUDAFED 12 HOUR [Concomitant]
  7. VYTARIN [Concomitant]
  8. TRICOR [Concomitant]

REACTIONS (3)
  - DRUG INEFFECTIVE [None]
  - HEADACHE [None]
  - INSOMNIA [None]
